FAERS Safety Report 9708701 (Version 4)
Quarter: 2014Q1

REPORT INFORMATION
  Report Type: Spontaneous
  Country: US (occurrence: US)
  Receive Date: 20131125
  Receipt Date: 20140115
  Transmission Date: 20141002
  Serious: No
  Sender: FDA-Public Use
  Company Number: US-VERTEX PHARMACEUTICALS INC-2013-011221

PATIENT
  Age: 56 Year
  Sex: Female
  Weight: 99.77 kg

DRUGS (11)
  1. INCIVEK [Suspect]
     Indication: HEPATITIS C
     Dosage: 750 MG, TID
     Route: 048
     Dates: start: 20131108
  2. PEGASYS [Suspect]
     Indication: HEPATITIS C
     Dosage: 180 ?G, QW
     Route: 058
     Dates: start: 20131108
  3. RIBAVIRIN [Suspect]
     Indication: HEPATITIS C
     Dosage: 600 MG, BID
     Route: 048
     Dates: start: 20131108
  4. HYDROCHLOROTHIAZIDE [Concomitant]
     Dosage: 1 DF, QD
     Route: 048
  5. GLIPIZIDE [Concomitant]
     Dosage: 1 DF, QD BEFORE MEALS
     Route: 048
  6. IBUPROFEN [Concomitant]
     Dosage: 200 MG, EVERY 6 HOURS
     Route: 048
  7. METFORMIN [Concomitant]
     Dosage: 500 MG, BID
     Route: 048
  8. LISINOPRIL [Concomitant]
     Dosage: 40 MG, QD
     Route: 048
  9. XYZAL [Concomitant]
     Dosage: 5 MG, QD, PRN
     Route: 048
  10. HYOSCYAMINE SULFATE [Concomitant]
     Dosage: 0.125 MG, EVERY 4 HOURS PRN
  11. PROZAC [Concomitant]
     Dosage: 80 MG, QD
     Route: 048

REACTIONS (52)
  - Drug dose omission [Unknown]
  - Dysphonia [Not Recovered/Not Resolved]
  - Stomatitis [Not Recovered/Not Resolved]
  - Cough [Not Recovered/Not Resolved]
  - Headache [Not Recovered/Not Resolved]
  - Chest discomfort [Not Recovered/Not Resolved]
  - Lymphadenopathy [Not Recovered/Not Resolved]
  - Vulvovaginal burning sensation [Not Recovered/Not Resolved]
  - Chromaturia [Not Recovered/Not Resolved]
  - Thirst [Not Recovered/Not Resolved]
  - Dry mouth [Not Recovered/Not Resolved]
  - Chills [Not Recovered/Not Resolved]
  - Urine output decreased [Not Recovered/Not Resolved]
  - Muscle spasms [Not Recovered/Not Resolved]
  - Dysphagia [Not Recovered/Not Resolved]
  - Throat tightness [Not Recovered/Not Resolved]
  - Choking [Not Recovered/Not Resolved]
  - Weight increased [Not Recovered/Not Resolved]
  - Pollakiuria [Not Recovered/Not Resolved]
  - Feeling cold [Not Recovered/Not Resolved]
  - Urine abnormality [Not Recovered/Not Resolved]
  - Cystitis [Not Recovered/Not Resolved]
  - Dyspnoea [Unknown]
  - Lethargy [Unknown]
  - Urinary tract infection [Unknown]
  - Back pain [Unknown]
  - Abdominal distension [Unknown]
  - Abdominal pain [Unknown]
  - Contusion [Unknown]
  - Circadian rhythm sleep disorder [Unknown]
  - Chills [Unknown]
  - Hyperhidrosis [Unknown]
  - Pyrexia [Unknown]
  - Melaena [Unknown]
  - Tremor [Unknown]
  - Weight decreased [Unknown]
  - Transaminases increased [Recovered/Resolved]
  - Malaise [Unknown]
  - Anxiety [Unknown]
  - Dysuria [Unknown]
  - Fatigue [Unknown]
  - Anorectal discomfort [Not Recovered/Not Resolved]
  - Jaundice [Unknown]
  - Proctalgia [Not Recovered/Not Resolved]
  - Rash [Not Recovered/Not Resolved]
  - Vomiting [Unknown]
  - Haematochezia [Unknown]
  - Nausea [Unknown]
  - Thrombocytopenia [Unknown]
  - Pruritus [Unknown]
  - Anaemia [Unknown]
  - Diarrhoea [Unknown]
